FAERS Safety Report 22222117 (Version 1)
Quarter: 2023Q2

REPORT INFORMATION
  Report Type: Report from Study
  Country: AR (occurrence: AR)
  Receive Date: 20230418
  Receipt Date: 20230418
  Transmission Date: 20230721
  Serious: Yes (Hospitalization)
  Sender: FDA-Public Use
  Company Number: AR-002147023-NVSC2023AR070986

PATIENT
  Sex: Male
  Weight: 19.1 kg

DRUGS (2)
  1. OMNITROPE [Suspect]
     Active Substance: SOMATROPIN
     Indication: Prader-Willi syndrome
     Dosage: UNK UNK, QD (5 MG /1.5 ML)
     Route: 058
     Dates: start: 20211203, end: 202211
  2. OMNITROPE [Suspect]
     Active Substance: SOMATROPIN
     Dosage: 0.5 UNK, QD
     Route: 065

REACTIONS (1)
  - Tonsillar hypertrophy [Recovering/Resolving]
